FAERS Safety Report 17349078 (Version 1)
Quarter: 2020Q1

REPORT INFORMATION
  Report Type: Spontaneous
  Country: CZ (occurrence: CZ)
  Receive Date: 20200129
  Receipt Date: 20200129
  Transmission Date: 20200409
  Serious: No
  Sender: FDA-Public Use
  Company Number: CZ-EXELIXIS-CABO-19025014

PATIENT
  Sex: Female

DRUGS (7)
  1. CABOMETYX [Suspect]
     Active Substance: CABOZANTINIB S-MALATE
     Dosage: 40 MG, QD
     Dates: end: 20181211
  2. CABOMETYX [Suspect]
     Active Substance: CABOZANTINIB S-MALATE
     Dosage: 20 MG, QD
     Dates: end: 20190110
  3. BROMAZEPAM [Concomitant]
     Active Substance: BROMAZEPAM
     Dosage: UNK
  4. VITAMIN B [Concomitant]
     Active Substance: VITAMIN B
     Dosage: UNK
  5. MAGNESIUM + VITAMIN B [Concomitant]
     Dosage: UNK
  6. CABOMETYX [Suspect]
     Active Substance: CABOZANTINIB S-MALATE
     Indication: METASTATIC RENAL CELL CARCINOMA
     Dosage: 60 MG
     Dates: start: 20180502, end: 20180607
  7. ALPRAZOLAM. [Concomitant]
     Active Substance: ALPRAZOLAM
     Dosage: UNK

REACTIONS (8)
  - Diarrhoea [Recovered/Resolved]
  - Fatigue [Unknown]
  - Demyelinating polyneuropathy [Unknown]
  - Hypertension [Recovered/Resolved]
  - Palmar-plantar erythrodysaesthesia syndrome [Recovered/Resolved]
  - Malignant neoplasm progression [Unknown]
  - Decreased appetite [Unknown]
  - Weight decreased [Recovered/Resolved]
